FAERS Safety Report 6775113-X (Version None)
Quarter: 2010Q2

REPORT INFORMATION
  Report Type: 
  Country: None (occurrence: None)
  Receive Date: 20100617
  Receipt Date: 20100608
  Transmission Date: 20101027
  Serious: Yes (Other)
  Sender: FDA-Public Use
  Company Number: US-PERRIGO-10US010300

PATIENT
  Sex: Female
  Weight: 18.594 kg

DRUGS (1)
  1. CHILDREN'S IBUPROFEN [Suspect]
     Indication: PYREXIA
     Dosage: 7.5 ML, EVERY 6 TO 8 HOURS
     Route: 048
     Dates: start: 20100606, end: 20100607

REACTIONS (7)
  - BLISTER [None]
  - DRUG INEFFECTIVE [None]
  - ERYTHEMA [None]
  - GAIT DISTURBANCE [None]
  - HYPERSENSITIVITY [None]
  - OEDEMA PERIPHERAL [None]
  - PAIN IN EXTREMITY [None]
